FAERS Safety Report 12454124 (Version 1)
Quarter: 2016Q2

REPORT INFORMATION
  Report Type: Spontaneous
  Country: US (occurrence: US)
  Receive Date: 20160610
  Receipt Date: 20160610
  Transmission Date: 20160815
  Serious: No
  Sender: FDA-Public Use
  Company Number: US-TEVA-642488USA

PATIENT
  Sex: Female

DRUGS (1)
  1. ENOXAPARIN [Suspect]
     Active Substance: ENOXAPARIN
     Dosage: 40 MG/0.4 ML
     Dates: start: 201509

REACTIONS (8)
  - Scar [Unknown]
  - Contusion [Unknown]
  - Skin mass [Unknown]
  - Erythema [Unknown]
  - Burning sensation [Unknown]
  - Needle issue [Unknown]
  - Pain [Unknown]
  - Syringe issue [Unknown]
